FAERS Safety Report 11915965 (Version 3)
Quarter: 2016Q4

REPORT INFORMATION
  Report Type: Report from Study
  Country: NL (occurrence: NL)
  Receive Date: 20160114
  Receipt Date: 20161013
  Transmission Date: 20170206
  Serious: Yes (Death, Other)
  Sender: FDA-Public Use
  Company Number: PHHY2016NL002771

PATIENT
  Sex: Male

DRUGS (1)
  1. SANDOSTATIN LAR DEPOT [Suspect]
     Active Substance: OCTREOTIDE ACETATE
     Indication: NEUROENDOCRINE TUMOUR
     Dosage: 30 MG/2 ML, QW3
     Route: 030

REACTIONS (6)
  - Asthenia [Unknown]
  - Malignant neoplasm progression [Unknown]
  - Neuroendocrine carcinoma metastatic [Unknown]
  - Terminal state [Unknown]
  - Inappropriate schedule of drug administration [Unknown]
  - Neuroendocrine tumour [Fatal]
